FAERS Safety Report 15381947 (Version 1)
Quarter: 2018Q3

REPORT INFORMATION
  Report Type: Spontaneous
  Country: US (occurrence: US)
  Receive Date: 20180913
  Receipt Date: 20180913
  Transmission Date: 20181010
  Serious: No
  Sender: FDA-Public Use
  Company Number: US-ASTELLAS-2018US007018

PATIENT
  Sex: Male

DRUGS (1)
  1. XTANDI [Suspect]
     Active Substance: ENZALUTAMIDE
     Indication: PROSTATE CANCER
     Route: 048
     Dates: start: 20180112, end: 20180202

REACTIONS (4)
  - Drug intolerance [Unknown]
  - Abdominal discomfort [Unknown]
  - Nausea [Unknown]
  - Treatment noncompliance [Unknown]
